FAERS Safety Report 8453869-8 (Version None)
Quarter: 2012Q2

REPORT INFORMATION
  Report Type: 
  Country: None (occurrence: None)
  Receive Date: 20120323
  Receipt Date: 20111031
  Transmission Date: 20120825
  Serious: Yes (Other)
  Sender: FDA-Public Use
  Company Number: 163-21880-11110388

PATIENT
  Age: 67 Year
  Sex: Male

DRUGS (1)
  1. REVLIMID [Suspect]
     Indication: CHRONIC LYMPHOCYTIC LEUKAEMIA
     Dosage: 10 MG, DAILY FOR 14 DAYS, THEN 7 DAYS REST, PO
     Route: 048
     Dates: start: 20110411

REACTIONS (2)
  - NEOPLASM PROGRESSION [None]
  - CHRONIC LYMPHOCYTIC LEUKAEMIA [None]
